FAERS Safety Report 8881033 (Version 1)
Quarter: 2012Q4

REPORT INFORMATION
  Report Type: 
  Country: US (occurrence: US)
  Receive Date: 20121101
  Receipt Date: 20121101
  Transmission Date: 20130627
  Serious: Yes (Hospitalization)
  Sender: FDA-Public Use
  Company Number: US-ASTRAZENECA-2012SE81697

PATIENT
  Age: 26 Year
  Sex: Female

DRUGS (4)
  1. LIDOCAINE [Suspect]
     Indication: LOCAL ANAESTHESIA
     Route: 053
  2. LIDOCAINE [Suspect]
     Indication: LOCAL ANAESTHESIA
     Route: 053
  3. BUPIVACAINE [Suspect]
     Indication: LOCAL ANAESTHESIA
     Route: 053
  4. DEPO-MEDROL [Suspect]
     Indication: LOCAL ANAESTHESIA
     Route: 053

REACTIONS (3)
  - Convulsion [Recovered/Resolved]
  - Tachycardia [Recovered/Resolved]
  - Hypertension [Recovered/Resolved]
